FAERS Safety Report 20833596 (Version 1)
Quarter: 2022Q2

REPORT INFORMATION
  Report Type: Report from Study
  Country: US (occurrence: US)
  Receive Date: 20220516
  Receipt Date: 20220516
  Transmission Date: 20220720
  Serious: No
  Sender: FDA-Public Use
  Company Number: US-Ipsen Biopharmaceuticals, Inc.-2022-12671

PATIENT
  Sex: Female

DRUGS (1)
  1. SOMATULINE DEPOT [Suspect]
     Active Substance: LANREOTIDE ACETATE
     Indication: Carcinoid tumour
     Dosage: 120/0.5 ML, EVERY FOUR WEEKS
     Route: 058
     Dates: start: 201907

REACTIONS (2)
  - Injection site mass [Recovered/Resolved]
  - Irritability [Not Recovered/Not Resolved]
